FAERS Safety Report 4666394-7 (Version None)
Quarter: 2005Q2

REPORT INFORMATION
  Report Type: 
  Country: None (occurrence: None)
  Receive Date: 20050519
  Receipt Date: 20050509
  Transmission Date: 20051028
  Serious: Yes (Hospitalization)
  Sender: FDA-Public Use
  Company Number: 2005CG00874

PATIENT
  Age: 79 Year
  Sex: Female

DRUGS (3)
  1. ZESTRIL [Suspect]
     Indication: ESSENTIAL HYPERTENSION
     Route: 048
     Dates: end: 20040605
  2. MOPRAL [Concomitant]
     Route: 048
     Dates: end: 20040605
  3. PREVISCAN [Concomitant]
     Route: 048
     Dates: end: 20040605

REACTIONS (4)
  - HYPERKALAEMIA [None]
  - INTERNATIONAL NORMALISED RATIO INCREASED [None]
  - PROTHROMBIN LEVEL DECREASED [None]
  - RENAL FAILURE ACUTE [None]
